FAERS Safety Report 16832803 (Version 1)
Quarter: 2019Q3

REPORT INFORMATION
  Report Type: Spontaneous
  Country: JP (occurrence: JP)
  Receive Date: 20190920
  Receipt Date: 20190920
  Transmission Date: 20191005
  Serious: Yes (Hospitalization, Other)
  Sender: FDA-Public Use
  Company Number: JP-ACTELION-A-CH2019-195699

PATIENT
  Age: 32 Year
  Sex: Female

DRUGS (1)
  1. EPOPROSTENOL SODIUM. [Suspect]
     Active Substance: EPOPROSTENOL SODIUM
     Indication: PULMONARY ARTERIAL HYPERTENSION
     Dosage: 53 NG, PER MIN
     Route: 042

REACTIONS (6)
  - Dyspnoea [Unknown]
  - Exposure during pregnancy [Unknown]
  - Pulmonary arterial pressure increased [Unknown]
  - Fatigue [Unknown]
  - Premature delivery [Unknown]
  - Caesarean section [Unknown]
